FAERS Safety Report 14128731 (Version 1)
Quarter: 2017Q4

REPORT INFORMATION
  Report Type: Spontaneous
  Country: US (occurrence: None)
  Receive Date: 20171026
  Receipt Date: 20171026
  Transmission Date: 20180321
  Serious: No
  Sender: FDA-Public Use
  Company Number: None

PATIENT
  Age: 63 Year
  Sex: Female

DRUGS (1)
  1. EZETIMIBE TABS [Suspect]
     Active Substance: EZETIMIBE
     Indication: HYPERLIPIDAEMIA
     Route: 048

REACTIONS (1)
  - Alopecia [None]

NARRATIVE: CASE EVENT DATE: 20170102
